FAERS Safety Report 6341971-6 (Version None)
Quarter: 2009Q3

REPORT INFORMATION
  Report Type: 
  Country: None (occurrence: None)
  Receive Date: 20090904
  Receipt Date: 20090826
  Transmission Date: 20100115
  Serious: Yes (Hospitalization)
  Sender: FDA-Public Use
  Company Number: DE-ABBOTT-09P-062-0594012-00

PATIENT
  Sex: Female
  Weight: 69 kg

DRUGS (6)
  1. HUMIRA [Suspect]
     Indication: CROHN'S DISEASE
     Route: 058
     Dates: start: 20080122
  2. NEBIVOLOL [Concomitant]
     Indication: HYPERTENSION
     Route: 048
  3. L-THYROXIN [Concomitant]
     Indication: THYROID NEOPLASM
     Route: 048
  4. VITAMIN B-12 [Concomitant]
     Indication: VITAMIN SUPPLEMENTATION
     Route: 042
  5. MUCOFALK [Concomitant]
     Indication: CROHN'S DISEASE
     Dosage: 1 PACK TID
     Route: 048
     Dates: start: 20090701
  6. TOREM [Concomitant]
     Indication: DRUG USE FOR UNKNOWN INDICATION
     Route: 048
     Dates: start: 20090701

REACTIONS (1)
  - FEMALE GENITAL TRACT FISTULA [None]
